FAERS Safety Report 16289885 (Version 12)
Quarter: 2022Q3

REPORT INFORMATION
  Report Type: Other
  Country: GB (occurrence: GB)
  Receive Date: 20190509
  Receipt Date: 20220804
  Transmission Date: 20221027
  Serious: Yes (Hospitalization, Congenital Anomaly, Other)
  Sender: FDA-Public Use
  Company Number: GB-MACLEODS PHARMACEUTICALS US LTD-MAC2019021163

PATIENT

DRUGS (55)
  1. LAMIVUDINE [Suspect]
     Active Substance: LAMIVUDINE
     Indication: Product used for unknown indication
     Dosage: 300 MILLIGRAM, QD (POWDER FOR INFUSION)
     Route: 064
     Dates: start: 20090110, end: 20100610
  2. LAMIVUDINE [Suspect]
     Active Substance: LAMIVUDINE
     Dosage: 300 MILLIGRAM, QD, (MOTHER DOSE), TABLET
     Route: 064
     Dates: start: 20100610, end: 20100610
  3. LAMIVUDINE [Suspect]
     Active Substance: LAMIVUDINE
     Dosage: UNK, TABLET
     Route: 064
     Dates: start: 20090101, end: 20100610
  4. LAMIVUDINE [Suspect]
     Active Substance: LAMIVUDINE
     Dosage: UNK
     Route: 064
     Dates: start: 20090922, end: 20100610
  5. LAMIVUDINE [Suspect]
     Active Substance: LAMIVUDINE
     Dosage: 150 MILLIGRAM(TABLET)
     Route: 064
  6. LAMIVUDINE [Suspect]
     Active Substance: LAMIVUDINE
     Dosage: UNK (MOTHER DOSE: UNK)
     Route: 064
     Dates: start: 20100610
  7. LAMIVUDINE [Suspect]
     Active Substance: LAMIVUDINE
     Dosage: 300 MILLIGRAM, QD, MOTHER DOSE: 300 MG, QD
     Route: 064
     Dates: start: 20090101, end: 20100610
  8. ZIDOVUDINE [Suspect]
     Active Substance: ZIDOVUDINE
     Indication: Product used for unknown indication
     Dosage: 600 MILLIGRAM, QD (DOSE 1)
     Route: 064
     Dates: start: 20090101, end: 20100610
  9. ZIDOVUDINE [Suspect]
     Active Substance: ZIDOVUDINE
     Dosage: UNK, 1 COURSE DURING FIRST TRIMESTER
     Route: 064
     Dates: start: 20090922, end: 20100610
  10. ZIDOVUDINE [Suspect]
     Active Substance: ZIDOVUDINE
     Dosage: 800 MILLIGRAM, QD (DOSE 1), POWDER FOR INFUSION
     Route: 064
     Dates: start: 20100610
  11. ZIDOVUDINE [Suspect]
     Active Substance: ZIDOVUDINE
     Dosage: 600 MILLIGRAM, QD(TABLET)
     Route: 064
     Dates: start: 20100610, end: 20100610
  12. ZIDOVUDINE [Suspect]
     Active Substance: ZIDOVUDINE
     Dosage: 800 MILLIGRAM, QD (DOSE 1), MOTHER DOSE
     Route: 064
     Dates: start: 20100610
  13. ZIDOVUDINE [Suspect]
     Active Substance: ZIDOVUDINE
     Dosage: UNK
     Route: 064
     Dates: start: 20090110, end: 20100610
  14. ZIDOVUDINE [Suspect]
     Active Substance: ZIDOVUDINE
     Dosage: 600 MILLIGRAM, QD
     Route: 064
     Dates: start: 20090610
  15. NEVIRAPINE [Suspect]
     Active Substance: NEVIRAPINE
     Indication: Product used for unknown indication
     Dosage: UNK, 1 COURSE DURING FIRST TRIMESTER, MODIFIED-RELEASE TABLET
     Route: 064
     Dates: start: 20090922, end: 20100610
  16. NEVIRAPINE [Suspect]
     Active Substance: NEVIRAPINE
     Dosage: UNK (DOSE 1)
     Route: 064
     Dates: start: 20100610
  17. NEVIRAPINE [Suspect]
     Active Substance: NEVIRAPINE
     Dosage: 400 MILLIGRAM, QD (DOSE 1), MODIFIED RELEASE TABLET
     Route: 064
     Dates: start: 20090101, end: 20100610
  18. NEVIRAPINE [Suspect]
     Active Substance: NEVIRAPINE
     Dosage: 400 MILLIGRAM, QD (DOSE 1, MODIFIED RELEASE TABLET)
     Route: 064
     Dates: start: 20100610
  19. NEVIRAPINE [Suspect]
     Active Substance: NEVIRAPINE
     Dosage: 400 MILLIGRAM (DOSE 1), MODIFIED RELEASE TABLET
     Route: 064
     Dates: start: 20090101, end: 20100610
  20. NEVIRAPINE [Suspect]
     Active Substance: NEVIRAPINE
     Dosage: UNK (DOSE 1)
     Route: 064
     Dates: start: 20100610
  21. NEVIRAPINE [Suspect]
     Active Substance: NEVIRAPINE
     Dosage: UNK (DOSE 1)
     Route: 064
  22. LOPINAVIR\RITONAVIR [Suspect]
     Active Substance: LOPINAVIR\RITONAVIR
     Indication: Product used for unknown indication
     Dosage: UNK
     Route: 064
     Dates: start: 20100610, end: 20100629
  23. LOPINAVIR\RITONAVIR [Suspect]
     Active Substance: LOPINAVIR\RITONAVIR
     Dosage: UNK
     Route: 064
  24. LOPINAVIR\RITONAVIR [Suspect]
     Active Substance: LOPINAVIR\RITONAVIR
     Dosage: UNK
     Route: 064
  25. LOPINAVIR\RITONAVIR [Suspect]
     Active Substance: LOPINAVIR\RITONAVIR
     Dosage: UNK
  26. VIREAD [Suspect]
     Active Substance: TENOFOVIR DISOPROXIL FUMARATE
     Indication: Product used for unknown indication
     Dosage: UNK, 1 COURSE TAB/CAP DURING THIRD TRIMESTER
     Route: 064
     Dates: start: 20100610
  27. VIREAD [Suspect]
     Active Substance: TENOFOVIR DISOPROXIL FUMARATE
     Dosage: UNK (DOSE1, 3RD TRIMESTER))
     Route: 064
  28. VIREAD [Suspect]
     Active Substance: TENOFOVIR DISOPROXIL FUMARATE
     Dosage: 300 MILLIGRAM, QD (FILM COATED TABLET, DOSE1)
     Route: 064
     Dates: start: 20100610, end: 20100629
  29. ISENTRESS [Suspect]
     Active Substance: RALTEGRAVIR POTASSIUM
     Indication: Product used for unknown indication
     Dosage: UNK
     Route: 064
  30. ISENTRESS [Suspect]
     Active Substance: RALTEGRAVIR POTASSIUM
     Dosage: 800 MILLIGRAM, QD, TABLET
     Route: 064
     Dates: start: 20100610
  31. ISENTRESS [Suspect]
     Active Substance: RALTEGRAVIR POTASSIUM
     Dosage: 800 MILLIGRAM, QID, 1 COURSE DURING THIRD TRIMESTER, POWDER FOR INFUSION
     Route: 064
     Dates: start: 20100610
  32. LOPINAVIR\RITONAVIR [Suspect]
     Active Substance: LOPINAVIR\RITONAVIR
     Indication: Product used for unknown indication
     Dosage: UNK, 1 COURSE OF TABLET DURING THIRD TRIMESTER
     Route: 064
     Dates: start: 20100610, end: 20100629
  33. LOPINAVIR\RITONAVIR [Suspect]
     Active Substance: LOPINAVIR\RITONAVIR
     Dosage: UNK
     Route: 064
     Dates: start: 20100710
  34. LOPINAVIR\RITONAVIR [Suspect]
     Active Substance: LOPINAVIR\RITONAVIR
     Dosage: UNK
     Route: 064
  35. LOPINAVIR\RITONAVIR [Suspect]
     Active Substance: LOPINAVIR\RITONAVIR
     Dosage: UNK, POWDER FOR INFUSION
     Route: 064
  36. TENOFOVIR DISOPROXIL FUMARATE [Suspect]
     Active Substance: TENOFOVIR DISOPROXIL FUMARATE
     Indication: Product used for unknown indication
     Dosage: UNK (1 COURSE, DURING THIRD TRIMESTER)
     Route: 064
     Dates: start: 20100610, end: 20100610
  37. TENOFOVIR DISOPROXIL FUMARATE [Suspect]
     Active Substance: TENOFOVIR DISOPROXIL FUMARATE
     Dosage: 300 MILLIGRAM, QD (MOTHER DOSE) (TABLET)
     Route: 064
     Dates: start: 20100610, end: 20100610
  38. TENOFOVIR DISOPROXIL FUMARATE [Suspect]
     Active Substance: TENOFOVIR DISOPROXIL FUMARATE
     Dosage: 300 MILLIGRAM, QD, TABLET
     Route: 064
     Dates: start: 20100610, end: 20100629
  39. TENOFOVIR DISOPROXIL FUMARATE [Suspect]
     Active Substance: TENOFOVIR DISOPROXIL FUMARATE
     Dosage: UNK (TABLET)
     Route: 065
     Dates: start: 20100610
  40. TENOFOVIR DISOPROXIL FUMARATE [Suspect]
     Active Substance: TENOFOVIR DISOPROXIL FUMARATE
     Dosage: 300 MILLIGRAM, QD, TABLET(MOTHER DOSE: 300 MG QD)
     Route: 064
     Dates: start: 20100610
  41. KALETRA [Suspect]
     Active Substance: LOPINAVIR\RITONAVIR
     Indication: Product used for unknown indication
     Dosage: UNK (DOSE 1)
     Route: 064
  42. KALETRA [Suspect]
     Active Substance: LOPINAVIR\RITONAVIR
     Dosage: UNK (MOTHER DOSE: UNK)
     Route: 064
     Dates: start: 20100610
  43. KALETRA [Suspect]
     Active Substance: LOPINAVIR\RITONAVIR
     Dosage: UNK (DOSE 1)
     Route: 064
     Dates: start: 20100610
  44. KALETRA [Suspect]
     Active Substance: LOPINAVIR\RITONAVIR
     Dosage: UNK; MOTHER DOSE
     Route: 064
     Dates: start: 20100710
  45. KALETRA [Suspect]
     Active Substance: LOPINAVIR\RITONAVIR
     Dosage: UNK; DOSE 1
     Route: 064
  46. RALTEGRAVIR [Suspect]
     Active Substance: RALTEGRAVIR
     Indication: Product used for unknown indication
     Dosage: UNK (DOSE 1), POWDER FOR INFUSION
     Route: 065
  47. RALTEGRAVIR [Suspect]
     Active Substance: RALTEGRAVIR
     Dosage: 800 MILLIGRAM, QD (DOSE 1, TABLET); RALTEGRAVIR POTASSIUM, PATIENT NOT TAKING TABLET AT CONCEPTION
     Route: 064
     Dates: start: 20100610
  48. RALTEGRAVIR [Suspect]
     Active Substance: RALTEGRAVIR
     Dosage: 1 DOSAGE FORM, QD(TABLET); RALTEGRAVIR POTASSIUM
     Route: 064
     Dates: start: 20100610
  49. RALTEGRAVIR [Suspect]
     Active Substance: RALTEGRAVIR
     Dosage: UNK
     Route: 064
  50. RALTEGRAVIR [Suspect]
     Active Substance: RALTEGRAVIR
     Dosage: 1 DOSAGE FORM, QD
     Route: 064
     Dates: start: 20100610
  51. VIRAMUNE [Suspect]
     Active Substance: NEVIRAPINE
     Indication: Product used for unknown indication
     Dosage: UNK (DOSE1)
     Route: 064
     Dates: start: 20090101, end: 20100610
  52. VIRAMUNE [Suspect]
     Active Substance: NEVIRAPINE
     Dosage: UNK (DOSE1)
     Route: 064
     Dates: end: 20100610
  53. VIRAMUNE [Suspect]
     Active Substance: NEVIRAPINE
     Dosage: 400 MILLIGRAM, QD (FILM COATED TABLETS)
     Route: 064
     Dates: start: 20100610
  54. VIRAMUNE [Suspect]
     Active Substance: NEVIRAPINE
     Dosage: 400 MILLIGRAM, QD (MODIFIED-RELEASE TABLET)
     Route: 064
     Dates: start: 20090101, end: 20100610
  55. RITONAVIR [Suspect]
     Active Substance: RITONAVIR
     Indication: Product used for unknown indication
     Dosage: UNK
     Route: 064
     Dates: end: 20100629

REACTIONS (2)
  - Volvulus [Not Recovered/Not Resolved]
  - Foetal exposure during pregnancy [Recovered/Resolved]

NARRATIVE: CASE EVENT DATE: 20100610
